FAERS Safety Report 6227734-0 (Version None)
Quarter: 2009Q2

REPORT INFORMATION
  Report Type: 
  Country: None (occurrence: None)
  Receive Date: 20090612
  Receipt Date: 20090603
  Transmission Date: 20091009
  Serious: Yes (Hospitalization)
  Sender: FDA-Public Use
  Company Number: US-ROCHE-636533

PATIENT
  Age: 15 Year
  Sex: Male

DRUGS (1)
  1. CELLCEPT [Suspect]
     Dosage: STRENGTH: 500/250
     Route: 065
     Dates: start: 20050901

REACTIONS (5)
  - ABDOMINAL PAIN [None]
  - CLOSTRIDIAL INFECTION [None]
  - DEHYDRATION [None]
  - HAEMATOCHEZIA [None]
  - NEPHROLITHIASIS [None]
